FAERS Safety Report 9233745 (Version 2)
Quarter: 2013Q2

REPORT INFORMATION
  Report Type: Spontaneous
  Country: US (occurrence: US)
  Receive Date: 20130416
  Receipt Date: 20130416
  Transmission Date: 20140414
  Serious: No
  Sender: FDA-Public Use
  Company Number: US-BANPHARM-20131033

PATIENT
  Sex: Female

DRUGS (9)
  1. ALEVE LIQUID GELS 220MG [Suspect]
     Indication: PAIN
     Dosage: 1 DF, ONCE,
     Route: 048
     Dates: start: 2012, end: 2012
  2. ALEVE CAPLETS [Suspect]
     Indication: PAIN
     Dosage: PRN (2-3DF QD)
     Dates: start: 201110
  3. OXYBUTIN [Concomitant]
  4. MULTIVITAMIN [Concomitant]
  5. POTASSIUM [Concomitant]
  6. VITAMIN D3 [Concomitant]
  7. LEXAPRO [Concomitant]
  8. HIGH BLOOD PRESSURE MEDICINE [Concomitant]
     Indication: HYPERTENSION
  9. CEPHALEXIN [Concomitant]

REACTIONS (1)
  - Drug ineffective [Unknown]
